FAERS Safety Report 16179983 (Version 1)
Quarter: 2019Q2

REPORT INFORMATION
  Report Type: Spontaneous
  Country: US (occurrence: US)
  Receive Date: 20190410
  Receipt Date: 20190410
  Transmission Date: 20190711
  Serious: No
  Sender: FDA-Public Use
  Company Number: US-009507513-1904USA004551

PATIENT
  Age: 2 Year
  Sex: Female

DRUGS (3)
  1. CARBOPLATIN. [Concomitant]
     Active Substance: CARBOPLATIN
     Indication: ASTROCYTOMA
     Dosage: UNK, FIRST LINE TREATMENT
  2. TEMODAR [Suspect]
     Active Substance: TEMOZOLOMIDE
     Indication: ASTROCYTOMA
     Dosage: UNK, FIRST LINE TREATMENT
  3. VINCRISTINE [Concomitant]
     Active Substance: VINCRISTINE
     Indication: ASTROCYTOMA
     Dosage: UNK

REACTIONS (1)
  - Off label use [Unknown]
